FAERS Safety Report 7466709-0 (Version None)
Quarter: 2011Q1

REPORT INFORMATION
  Report Type: 
  Country: None (occurrence: None)
  Receive Date: 20110302
  Receipt Date: 20100823
  Transmission Date: 20110831
  Serious: Yes (Death, Hospitalization)
  Sender: FDA-Public Use
  Company Number: 163-21880-10062633

PATIENT
  Age: 74 Year
  Sex: Male

DRUGS (3)
  1. REVLIMID [Suspect]
     Indication: MYELODYSPLASTIC SYNDROME
     Dosage: 15 MG, DAILY X 28 DAYS, PO
     Route: 048
     Dates: start: 20100603, end: 20100701
  2. BENICAR [Concomitant]
  3. VITAMIN B6 [Concomitant]

REACTIONS (4)
  - PNEUMONIA [None]
  - ACUTE LEUKAEMIA [None]
  - MYELODYSPLASTIC SYNDROME TRANSFORMATION [None]
  - PLATELET COUNT DECREASED [None]
